APPROVED DRUG PRODUCT: ALLERNAZE
Active Ingredient: TRIAMCINOLONE ACETONIDE
Strength: 0.05MG/SPRAY
Dosage Form/Route: SPRAY, METERED;NASAL
Application: N020120 | Product #001
Applicant: LUPIN ATLANTIS HOLDING SA SWITZERLAND
Approved: Feb 4, 2000 | RLD: No | RS: No | Type: DISCN